FAERS Safety Report 5595220-7 (Version None)
Quarter: 2008Q1

REPORT INFORMATION
  Report Type: 
  Country: None (occurrence: None)
  Receive Date: 20080117
  Receipt Date: 20080109
  Transmission Date: 20080703
  Serious: Yes (Other)
  Sender: FDA-Public Use
  Company Number: FR-PFIZER INC-2008003086

PATIENT
  Age: 61 Year
  Sex: Male

DRUGS (1)
  1. VIAGRA [Suspect]

REACTIONS (4)
  - BLINDNESS [None]
  - LOSS OF CONSCIOUSNESS [None]
  - MALAISE [None]
  - VISUAL DISTURBANCE [None]
